FAERS Safety Report 11942760 (Version 1)
Quarter: 2016Q1

REPORT INFORMATION
  Report Type: Spontaneous
  Country: US (occurrence: US)
  Receive Date: 20160125
  Receipt Date: 20160125
  Transmission Date: 20160526
  Serious: No
  Sender: FDA-Public Use
  Company Number: US-UNITED THERAPEUTICS-UNT-2015-009362

PATIENT
  Sex: Female
  Weight: 63.95 kg

DRUGS (7)
  1. LASIX [Suspect]
     Active Substance: FUROSEMIDE
     Indication: PULMONARY ARTERIAL HYPERTENSION
     Dosage: 40 MG, QD
     Route: 048
  2. GABAPENTIN. [Concomitant]
     Active Substance: GABAPENTIN
     Indication: PULMONARY ARTERIAL HYPERTENSION
     Dosage: 300 MG, BID
     Route: 048
  3. SPIRONOLACTONE. [Suspect]
     Active Substance: SPIRONOLACTONE
     Indication: PULMONARY ARTERIAL HYPERTENSION
     Dosage: 100 MG, QD
     Route: 048
  4. LETAIRIS [Suspect]
     Active Substance: AMBRISENTAN
     Indication: PULMONARY ARTERIAL HYPERTENSION
     Dosage: 10 MG, QD
     Route: 048
  5. REMODULIN [Suspect]
     Active Substance: TREPROSTINIL
     Indication: PULMONARY HYPERTENSION
     Dosage: 0.015 ?G/KG/MIN, CONTINUING
     Route: 058
     Dates: start: 20150727
  6. ADCIRCA [Suspect]
     Active Substance: TADALAFIL
     Indication: PULMONARY ARTERIAL HYPERTENSION
     Dosage: 20 MG, QD
     Route: 048
  7. REMODULIN [Suspect]
     Active Substance: TREPROSTINIL
     Dosage: 0.0217 ?G/KG/MIN, CONTINUING
     Route: 058

REACTIONS (9)
  - Dyspnoea [Recovering/Resolving]
  - Fatigue [Unknown]
  - Infusion site infection [Unknown]
  - Diarrhoea [Unknown]
  - Infusion site erythema [Unknown]
  - Infusion site pain [Unknown]
  - Restless legs syndrome [Unknown]
  - Malaise [Unknown]
  - Oxygen saturation decreased [Unknown]

NARRATIVE: CASE EVENT DATE: 2015
